FAERS Safety Report 11459205 (Version 2)
Quarter: 2015Q4

REPORT INFORMATION
  Report Type: Spontaneous
  Country: DE (occurrence: DE)
  Receive Date: 20150904
  Receipt Date: 20151015
  Transmission Date: 20160304
  Serious: Yes (Hospitalization)
  Sender: FDA-Public Use
  Company Number: DE-TEVA-590365GER

PATIENT
  Age: 65 Year
  Sex: Female

DRUGS (8)
  1. BACLOFEN. [Suspect]
     Active Substance: BACLOFEN
     Dosage: 10 MILLIGRAM DAILY;
     Route: 048
  2. BISOPROLOL [Concomitant]
     Active Substance: BISOPROLOL
  3. AMLODIPIN [Concomitant]
     Active Substance: AMLODIPINE BESYLATE
  4. HCT [Concomitant]
     Active Substance: HYDROCHLOROTHIAZIDE
  5. MARCUMAR [Concomitant]
     Active Substance: PHENPROCOUMON
  6. BACLOFEN. [Suspect]
     Active Substance: BACLOFEN
     Indication: PARESIS
     Dosage: 75 MILLIGRAM DAILY; INTAKE SINCE THE 2000S; SUSPECT DRUG IS MAYBE FROM RATIOPHARM
     Route: 048
  7. BACLOFEN. [Suspect]
     Active Substance: BACLOFEN
     Dosage: 2.5 MILLIGRAM DAILY;
     Route: 048
  8. RAMIPRIL. [Concomitant]
     Active Substance: RAMIPRIL

REACTIONS (3)
  - Acute kidney injury [Recovered/Resolved]
  - Hypotension [Recovered/Resolved]
  - Delirium [Recovered/Resolved]

NARRATIVE: CASE EVENT DATE: 20141023
